FAERS Safety Report 4358023-7 (Version None)
Quarter: 2004Q2

REPORT INFORMATION
  Report Type: 
  Country: None (occurrence: None)
  Receive Date: 20040513
  Receipt Date: 20040513
  Transmission Date: 20050107
  Serious: Yes (Hospitalization)
  Sender: FDA-Public Use
  Company Number: None

PATIENT
  Age: 45 Year
  Sex: Female
  Weight: 102.5129 kg

DRUGS (2)
  1. TPA 5MG/HR (30 MG QD X 5 DAYS) [Suspect]
     Indication: ADRENAL CARCINOMA
     Dosage: 30 MG QD X 5 DAYS
     Dates: start: 20040416, end: 20040420
  2. CAPTOPRIL [Suspect]
     Dosage: 25 MG X2 DOSES (5 DAYS)

REACTIONS (4)
  - ABDOMINAL PAIN [None]
  - CONSTIPATION [None]
  - NAUSEA [None]
  - VOMITING [None]
